FAERS Safety Report 24055115 (Version 1)
Quarter: 2024Q3

REPORT INFORMATION
  Report Type: Spontaneous
  Country: CN (occurrence: CN)
  Receive Date: 20240705
  Receipt Date: 20240705
  Transmission Date: 20241017
  Serious: Yes (Life-Threatening, Other)
  Sender: ABBVIE
  Company Number: CN-PFIZER INC-PV202400085104

PATIENT
  Age: 63 Year
  Sex: Male
  Weight: 60 kg

DRUGS (15)
  1. AVIBACTAM SODIUM [Suspect]
     Active Substance: AVIBACTAM SODIUM
     Indication: Pneumonia klebsiella
     Dosage: TIME INTERVAL: 0.33333333 DAYS: 1.25 G, 3X/DAY
     Route: 041
     Dates: start: 20211203, end: 20211215
  2. SUCCINYLATED GELATIN [Concomitant]
     Active Substance: SUCCINYLATED GELATIN
     Indication: Hypervolaemia
     Route: 065
     Dates: start: 20211111
  3. NOREPINEPHRINE [Concomitant]
     Active Substance: NOREPINEPHRINE\NOREPINEPHRINE BITARTRATE
     Indication: Product used for unknown indication
     Route: 042
     Dates: start: 20211111
  4. LEVOFLOXACIN MESYLATE [Concomitant]
     Active Substance: LEVOFLOXACIN MESYLATE
     Indication: Anti-infective therapy
     Dosage: 0.6 G, 1X/DAY
     Route: 041
     Dates: start: 202111
  5. DOPAMINE [Concomitant]
     Active Substance: DOPAMINE HYDROCHLORIDE
     Indication: Product used for unknown indication
     Route: 042
     Dates: start: 20211111
  6. METARAMINOL [Concomitant]
     Active Substance: METARAMINOL
     Indication: Hypertension
     Route: 065
  7. TIGECYCLINE [Suspect]
     Active Substance: TIGECYCLINE
     Indication: Pneumonia klebsiella
     Dosage: 100 MG, 2X/DAY
     Route: 041
     Dates: start: 202111
  8. TIGECYCLINE [Suspect]
     Active Substance: TIGECYCLINE
     Indication: Pneumonia klebsiella
     Dosage: TIME INTERVAL: 1 TOTAL: 200 MG, SINGLE
     Route: 041
     Dates: start: 20211119, end: 20211119
  9. HETASTARCH [Concomitant]
     Active Substance: HETASTARCH
     Indication: Hypervolaemia
     Dosage: UNK
     Route: 065
     Dates: start: 20211111
  10. MEROPENEM [Suspect]
     Active Substance: MEROPENEM
     Indication: Pneumonia klebsiella
     Dosage: TIME INTERVAL: 0.33333333 DAYS: 2 G, 3X/DAY
     Route: 041
     Dates: start: 20211119
  11. MEROPENEM [Suspect]
     Active Substance: MEROPENEM
     Indication: Pneumonia klebsiella
     Dosage: TIME INTERVAL: 0.33333333 DAYS: 1.0 G, 3X/DAY
     Route: 041
     Dates: start: 202111
  12. AZTREONAM [Suspect]
     Active Substance: AZTREONAM
     Indication: Pneumonia
     Dosage: UNK, 2X/DAY
     Route: 041
     Dates: start: 20211214, end: 20211215
  13. MOXIFLOXACIN HYDROCHLORIDE [Concomitant]
     Active Substance: MOXIFLOXACIN HYDROCHLORIDE\MOXIFLOXACIN HYDROCHLORIDE MONOHYDRATE
     Indication: Anti-infective therapy
     Dosage: 0.4 G, 1X/DAY
     Route: 041
     Dates: start: 20211110
  14. TEICOPLANIN [Concomitant]
     Active Substance: TEICOPLANIN
     Indication: Anti-infective therapy
     Dosage: 0.6 G, 1X/DAY
     Route: 041
     Dates: start: 202111
  15. TEICOPLANIN [Concomitant]
     Active Substance: TEICOPLANIN
     Indication: Anti-infective therapy
     Dosage: 0.6 G, 2X/DAY (ON DAY 1)
     Route: 041
     Dates: start: 202111, end: 202111

REACTIONS (2)
  - Off label use [Unknown]
  - Treatment failure [Unknown]

NARRATIVE: CASE EVENT DATE: 20211119
